FAERS Safety Report 5074692-0 (Version None)
Quarter: 2006Q3

REPORT INFORMATION
  Report Type: 
  Country: None (occurrence: None)
  Receive Date: 20060803
  Receipt Date: 20060718
  Transmission Date: 20061208
  Serious: Yes (Other)
  Sender: FDA-Public Use
  Company Number: US200601004530

PATIENT
  Age: 36 Year
  Sex: Female
  Weight: 72.6 kg

DRUGS (15)
  1. CYMBALTA [Suspect]
     Indication: DEPRESSION
     Dosage: 60 MG
     Dates: start: 20050901, end: 20051201
  2. ULTRAM [Concomitant]
  3. MIDRIN (DICHLORALPHENAZONE, ISOMETHEPTENE, PARACETAMOL) [Concomitant]
  4. MACROBID [Concomitant]
  5. VISTARIL (HYDROXYZINE EMBONATE) [Concomitant]
  6. KLONOPIN [Concomitant]
  7. OMEPRAZOLE [Concomitant]
  8. ADVAIR DISKUS 100/50 [Concomitant]
  9. PANOTILE (FLUDROCORTISONE ACETATE, LIDOCAINE HYDROCHLORIDE, NEOMYCIN S [Concomitant]
  10. PROTONIX [Concomitant]
  11. DIAMOX   /CAN/(ACETAZOLAMIDE) [Concomitant]
  12. CECLOR    /USA/(CEFACLOR) [Concomitant]
  13. CALTRATE (CALCIUM CARBONATE) [Concomitant]
  14. MULTIVITAMIN [Concomitant]
  15. LEXAPRO    /USA/ (ESCITALOPRAM) [Concomitant]

REACTIONS (7)
  - ABDOMINAL PAIN UPPER [None]
  - DIARRHOEA [None]
  - HEPATITIS [None]
  - INFLUENZA [None]
  - LUNG DISORDER [None]
  - NECK PAIN [None]
  - VERTIGO [None]
